FAERS Safety Report 12798965 (Version 1)
Quarter: 2016Q3

REPORT INFORMATION
  Report Type: Spontaneous
  Country: FR (occurrence: FR)
  Receive Date: 20160930
  Receipt Date: 20160930
  Transmission Date: 20161109
  Serious: Yes (Hospitalization)
  Sender: FDA-Public Use
  Company Number: FR-PFIZER INC-2016439147

PATIENT
  Age: 51 Year
  Sex: Female
  Weight: 57 kg

DRUGS (11)
  1. EPIRUBICIN HCL [Suspect]
     Active Substance: EPIRUBICIN HYDROCHLORIDE
     Dosage: 95 MG, EVERY OTHER WEEK
     Route: 042
     Dates: start: 20160506, end: 20160715
  2. AMIKACIN [Concomitant]
     Active Substance: AMIKACIN
     Dosage: UNK
     Dates: start: 201607, end: 201607
  3. ROVAMYCIN [Suspect]
     Active Substance: SPIRAMYCIN
     Dosage: UNK
     Route: 048
     Dates: start: 20160803, end: 20160803
  4. GENTAMICIN. [Concomitant]
     Active Substance: GENTAMICIN
     Dosage: UNK
     Dates: start: 20160724
  5. CEFTRIAXONE. [Concomitant]
     Active Substance: CEFTRIAXONE
     Dosage: UNK
     Dates: start: 201607, end: 201607
  6. VANCOMYCIN [Concomitant]
     Active Substance: VANCOMYCIN
     Dosage: UNK
     Dates: start: 20160724
  7. PIPERACILLIN/TAZOBACTAM [Concomitant]
     Active Substance: PIPERACILLIN SODIUM\TAZOBACTAM SODIUM
     Dosage: UNK
     Route: 042
     Dates: start: 20160727, end: 20160728
  8. NIVESTIM [Suspect]
     Active Substance: FILGRASTIM
     Dosage: UNK UNK, SINGLE
     Route: 042
     Dates: start: 20160720, end: 20160720
  9. DOCETAXEL. [Suspect]
     Active Substance: DOCETAXEL
     Dosage: 95 MG, EVERY OTHER WEEK
     Route: 042
     Dates: start: 20160506, end: 20160715
  10. ROVAMYCIN [Suspect]
     Active Substance: SPIRAMYCIN
     Dosage: UNK
     Route: 042
     Dates: start: 20160727, end: 20160802
  11. OMEPRAZOLE. [Concomitant]
     Active Substance: OMEPRAZOLE
     Dosage: UNK
     Dates: start: 201607

REACTIONS (4)
  - Papule [Recovered/Resolved]
  - Blister [Recovered/Resolved]
  - Rash erythematous [Recovered/Resolved]
  - Paraesthesia [Unknown]

NARRATIVE: CASE EVENT DATE: 201608
